FAERS Safety Report 20709473 (Version 1)
Quarter: 2022Q2

REPORT INFORMATION
  Report Type: Spontaneous
  Country: US (occurrence: None)
  Receive Date: 20220413
  Receipt Date: 20220413
  Transmission Date: 20220720
  Serious: Yes (Hospitalization)
  Sender: FDA-Public Use
  Company Number: None

PATIENT
  Age: 11 Year
  Sex: Female
  Weight: 44.8 kg

DRUGS (1)
  1. CYCLOSPORINE MODIFIED [Suspect]
     Active Substance: CYCLOSPORINE
     Indication: Aplastic anaemia
     Dosage: FREQUENCY : TWICE A DAY;?
     Route: 048
     Dates: start: 20220204

REACTIONS (7)
  - Anxiety [None]
  - Product odour abnormal [None]
  - Vomiting [None]
  - Nausea [None]
  - Acute kidney injury [None]
  - Dehydration [None]
  - Product substitution issue [None]

NARRATIVE: CASE EVENT DATE: 20220410
